FAERS Safety Report 13584459 (Version 7)
Quarter: 2018Q2

REPORT INFORMATION
  Report Type: Report from Study
  Country: GB (occurrence: GB)
  Receive Date: 20170526
  Receipt Date: 20180516
  Transmission Date: 20180711
  Serious: Yes (Hospitalization)
  Sender: FDA-Public Use
  Company Number: GB-ROCHE-1938243

PATIENT
  Age: 62 Year
  Sex: Female
  Weight: 56.7 kg

DRUGS (15)
  1. ORAMORPH [Concomitant]
     Active Substance: MORPHINE SULFATE
     Indication: PAIN
     Route: 065
     Dates: start: 20170308
  2. AMIODARONE [Concomitant]
     Active Substance: AMIODARONE
     Indication: ATRIAL FLUTTER
     Route: 065
     Dates: start: 20170825
  3. ATEZOLIZUMAB. [Suspect]
     Active Substance: ATEZOLIZUMAB
     Indication: NON-SMALL CELL LUNG CANCER STAGE IV
     Dosage: DATE OF MOST RECENT DOSE PRIOR TO SAE: 28/APR/2017
     Route: 042
     Dates: start: 20170428
  4. ONDANSETRON [Concomitant]
     Active Substance: ONDANSETRON
     Indication: NAUSEA
     Route: 065
     Dates: start: 20170428, end: 20170717
  5. PARACETAMOL [Concomitant]
     Active Substance: ACETAMINOPHEN
     Indication: PAIN
     Route: 065
     Dates: start: 20161229
  6. DOMPERIDONE [Concomitant]
     Active Substance: DOMPERIDONE
     Indication: NAUSEA
     Route: 065
     Dates: start: 20170502, end: 20170508
  7. FOLIC ACID. [Concomitant]
     Active Substance: FOLIC ACID
     Indication: PREMEDICATION
     Route: 065
     Dates: start: 20170331
  8. VITAMIN B12 [Concomitant]
     Active Substance: CYANOCOBALAMIN
     Indication: PREMEDICATION
     Route: 065
     Dates: start: 20170331
  9. CARBOPLATIN. [Suspect]
     Active Substance: CARBOPLATIN
     Indication: NON-SMALL CELL LUNG CANCER STAGE IV
     Dosage: DATE OF MOST RECENT DOSE (750 UNIT NOT REPORTED) PRIOR TO SAE: 28/APR/2017?AUC 6MG/ML/MIN
     Route: 042
     Dates: start: 20170428
  10. BISOPROLOL [Concomitant]
     Active Substance: BISOPROLOL
     Indication: TACHYCARDIA
     Route: 065
     Dates: start: 20170824
  11. GRANISETRON [Concomitant]
     Active Substance: GRANISETRON
     Indication: PROPHYLAXIS
     Route: 065
     Dates: start: 20170428, end: 20170428
  12. PEMETREXED. [Suspect]
     Active Substance: PEMETREXED
     Indication: NON-SMALL CELL LUNG CANCER STAGE IV
     Dosage: DATE OF MOST RECENT DOSE PRIOR TO SAE (812.5 MG): 28/APR/2017
     Route: 042
     Dates: start: 20170428
  13. DALTEPARIN [Concomitant]
     Active Substance: DALTEPARIN
     Indication: PULMONARY EMBOLISM
     Route: 065
     Dates: start: 20170822
  14. LACTULOSE. [Concomitant]
     Active Substance: LACTULOSE
     Indication: CONSTIPATION
     Route: 065
     Dates: start: 20170824, end: 20170825
  15. MAGNESIUM ASPARTATE [Concomitant]
     Active Substance: MAGNESIUM ASPARTATE
     Indication: HYPOMAGNESAEMIA
     Route: 065
     Dates: start: 20170823

REACTIONS (2)
  - Catatonia [Recovered/Resolved]
  - Blood alkaline phosphatase increased [Not Recovered/Not Resolved]

NARRATIVE: CASE EVENT DATE: 20170517
